FAERS Safety Report 13427175 (Version 1)
Quarter: 2017Q2

REPORT INFORMATION
  Report Type: Spontaneous
  Country: US (occurrence: US)
  Receive Date: 20170411
  Receipt Date: 20170411
  Transmission Date: 20170830
  Serious: Yes (Other)
  Sender: FDA-Public Use
  Company Number: None

PATIENT
  Age: 62 Year
  Sex: Female
  Weight: 72 kg

DRUGS (5)
  1. AMLODIPINE [Concomitant]
     Active Substance: AMLODIPINE BESYLATE
  2. VITAMINS [Concomitant]
     Active Substance: VITAMINS
  3. MAGNESIUM [Concomitant]
     Active Substance: MAGNESIUM
  4. LEVOFLOXACIN. [Suspect]
     Active Substance: LEVOFLOXACIN
     Indication: PHARYNGITIS STREPTOCOCCAL
     Dosage: ?          QUANTITY:10 TABLET(S);?
     Route: 048
     Dates: start: 20170307, end: 20170315
  5. JUICE PLUS [Concomitant]
     Active Substance: DIETARY SUPPLEMENT

REACTIONS (3)
  - Pain in extremity [None]
  - Pain [None]
  - Musculoskeletal pain [None]

NARRATIVE: CASE EVENT DATE: 20170312
